FAERS Safety Report 8427283-5 (Version None)
Quarter: 2012Q2

REPORT INFORMATION
  Report Type: 
  Country: None (occurrence: None)
  Receive Date: 20120611
  Receipt Date: 20120528
  Transmission Date: 20120825
  Serious: Yes (Death)
  Sender: FDA-Public Use
  Company Number: JP-VIIV HEALTHCARE LIMITED-B0804861A

PATIENT
  Sex: Male

DRUGS (5)
  1. KOGENATE [Concomitant]
     Indication: FACTOR VIII DEFICIENCY
     Dosage: 20000IU IN THE MORNING
     Route: 042
  2. LEXIVA [Suspect]
     Indication: HIV INFECTION
     Dosage: 1400MG PER DAY
     Route: 048
     Dates: start: 20090205
  3. NORVIR [Suspect]
     Indication: HIV INFECTION
     Dosage: 100MG PER DAY
     Route: 048
     Dates: start: 20060105
  4. VIREAD [Suspect]
     Indication: HIV INFECTION
     Dosage: 300MG PER DAY
     Route: 048
     Dates: start: 20060907
  5. EPIVIR [Suspect]
     Indication: HIV INFECTION
     Dosage: 300MG PER DAY
     Route: 048
     Dates: start: 20060907

REACTIONS (1)
  - GASTROINTESTINAL HAEMORRHAGE [None]
